FAERS Safety Report 24649613 (Version 1)
Quarter: 2024Q4

REPORT INFORMATION
  Report Type: Spontaneous
  Country: CN (occurrence: CN)
  Receive Date: 20241121
  Receipt Date: 20241121
  Transmission Date: 20250115
  Serious: Yes (Hospitalization)
  Sender: BEIGENE
  Company Number: CN-BEIGENE-BGN-2024-018495

PATIENT

DRUGS (10)
  1. TISLELIZUMAB [Suspect]
     Active Substance: TISLELIZUMAB
     Indication: Cervix carcinoma
     Dosage: 200 MILLIGRAM
     Route: 041
     Dates: start: 20240712
  2. TISLELIZUMAB [Suspect]
     Active Substance: TISLELIZUMAB
     Dosage: 200 MILLIGRAM
     Route: 041
     Dates: start: 20240826
  3. TISLELIZUMAB [Suspect]
     Active Substance: TISLELIZUMAB
     Dosage: 200 MILLIGRAM
     Route: 041
     Dates: start: 20240902
  4. TISLELIZUMAB [Suspect]
     Active Substance: TISLELIZUMAB
     Dosage: 200 MILLIGRAM
     Route: 041
     Dates: start: 20240925
  5. TISLELIZUMAB [Suspect]
     Active Substance: TISLELIZUMAB
     Dosage: 200 MILLIGRAM
     Route: 041
     Dates: start: 20241017, end: 20241105
  6. BEVACIZUMAB [Concomitant]
     Active Substance: BEVACIZUMAB
     Indication: Cervix carcinoma
     Dosage: 600 MILLIGRAM
     Route: 041
     Dates: start: 20240712
  7. BEVACIZUMAB [Concomitant]
     Active Substance: BEVACIZUMAB
     Dosage: 600 MILLIGRAM
     Route: 041
     Dates: start: 20240826
  8. BEVACIZUMAB [Concomitant]
     Active Substance: BEVACIZUMAB
     Dosage: 600 MILLIGRAM
     Route: 041
     Dates: start: 20240902
  9. BEVACIZUMAB [Concomitant]
     Active Substance: BEVACIZUMAB
     Dosage: 600 MILLIGRAM
     Route: 041
     Dates: start: 20240925
  10. BEVACIZUMAB [Concomitant]
     Active Substance: BEVACIZUMAB
     Dosage: 600 MILLIGRAM
     Route: 041
     Dates: start: 20241017, end: 20241105

REACTIONS (1)
  - Pemphigus [Recovering/Resolving]

NARRATIVE: CASE EVENT DATE: 20241105
